FAERS Safety Report 9683572 (Version 1)
Quarter: 2013Q4

REPORT INFORMATION
  Report Type: Spontaneous
  Country: US (occurrence: US)
  Receive Date: 20131112
  Receipt Date: 20131112
  Transmission Date: 20140711
  Serious: No
  Sender: FDA-Public Use
  Company Number: US-B.I. PHARMACEUTICALS,INC./RIDGEFIELD-2013-BI-35039BP

PATIENT
  Age: 69 Year
  Sex: Male
  Weight: 121 kg

DRUGS (17)
  1. PRADAXA [Suspect]
     Indication: ATRIAL FIBRILLATION
     Dosage: 300 MG
     Route: 048
     Dates: start: 2012, end: 20131008
  2. PRADAXA [Suspect]
     Dosage: 150 MG
     Route: 048
     Dates: start: 2012, end: 20131008
  3. KLONIPIN [Concomitant]
     Indication: PAIN IN EXTREMITY
     Dosage: 2 MG
     Route: 048
  4. LORTAB [Concomitant]
     Indication: PAIN IN EXTREMITY
     Dosage: STRENGTH: 10/500 MG AT NIGHT.
     Route: 048
  5. LORTAB [Concomitant]
     Dosage: STRENGTH: 7.5/500 MG IN MORNING.
     Route: 048
  6. KLORCON [Concomitant]
     Dosage: 20 MEQ
     Route: 048
  7. PROTONIX [Concomitant]
     Indication: GASTRIC ULCER
     Dosage: 40 MG
     Route: 048
  8. ZYRTEC [Concomitant]
     Indication: SINUS DISORDER
     Dosage: 10 MG
     Route: 048
  9. LOSARTAN [Concomitant]
     Indication: HYPERTENSION
     Dosage: STRENGTH: 20/25 MG; DAILY DOSE: 20/25 MG
     Route: 048
  10. CARVEDILOL [Concomitant]
     Indication: HYPERTENSION
     Dosage: 25 MG
     Route: 048
     Dates: end: 20131016
  11. CARVEDILOL [Concomitant]
     Dosage: 12.5 MG AT NIGHT AND 6.25 MG IN MORNING
     Route: 048
     Dates: end: 20131016
  12. RANITIDINE [Concomitant]
     Indication: GASTRIC ULCER
     Dosage: 300 MG
     Route: 048
  13. LASIX [Concomitant]
     Indication: LOCAL SWELLING
     Dosage: 20 MG
     Route: 048
  14. FISH OIL [Concomitant]
     Route: 048
  15. MAGNESIUM [Concomitant]
     Route: 048
  16. MULTIVITAMIN [Concomitant]
     Route: 048
  17. LYRICA [Concomitant]
     Indication: NEUROPATHY PERIPHERAL
     Dosage: 300 MG
     Route: 048

REACTIONS (4)
  - Mouth haemorrhage [Recovered/Resolved]
  - Decreased appetite [Recovered/Resolved]
  - Lethargy [Recovered/Resolved]
  - Hypotension [Recovered/Resolved]
